FAERS Safety Report 7912269-7 (Version None)
Quarter: 2011Q4

REPORT INFORMATION
  Report Type: 
  Country: None (occurrence: None)
  Receive Date: 20111114
  Receipt Date: 20111109
  Transmission Date: 20120403
  Serious: Yes (Other)
  Sender: FDA-Public Use
  Company Number: GB-MERCK-1111GBR00038

PATIENT
  Age: 78 Year
  Sex: Male

DRUGS (6)
  1. DOXAZOSIN MESYLATE [Concomitant]
     Route: 065
  2. ALBUTEROL SULFATE [Concomitant]
     Route: 065
  3. COZAAR [Suspect]
     Indication: HYPERTENSION
     Route: 048
     Dates: start: 20111024, end: 20111028
  4. SIMVASTATIN [Concomitant]
     Route: 048
  5. ASPIRIN [Concomitant]
     Route: 065
  6. DILTIAZEM HYDROCHLORIDE [Concomitant]
     Route: 065

REACTIONS (1)
  - ASTHMA [None]
